FAERS Safety Report 8760925 (Version 1)
Quarter: 2012Q4

REPORT INFORMATION
  Report Type: 
  Country: US (occurrence: US)
  Receive Date: 20120830
  Receipt Date: 20120830
  Transmission Date: 20130627
  Serious: Yes (Other)
  Sender: FDA-Public Use
  Company Number: PHEH2012US016771

PATIENT
  Sex: Female

DRUGS (1)
  1. RECLAST [Suspect]
     Dosage: 5 m/100ml
     Route: 042

REACTIONS (5)
  - Fall [Unknown]
  - Hip fracture [Unknown]
  - Haemorrhage [Unknown]
  - Osteoporosis [Unknown]
  - Osteoarthritis [Unknown]
